FAERS Safety Report 8605496-7 (Version None)
Quarter: 2012Q3

REPORT INFORMATION
  Report Type: 
  Country: None (occurrence: None)
  Receive Date: 20120820
  Receipt Date: 20110908
  Transmission Date: 20120928
  Serious: No
  Sender: FDA-Public Use
  Company Number: US-MYLANLABS-2011S1019012

PATIENT
  Sex: Female

DRUGS (3)
  1. TERBINAFINE HCL [Suspect]
     Indication: FUNGAL INFECTION
     Route: 048
     Dates: start: 20110801
  2. ANTIHYPERTENSIVES [Concomitant]
  3. ZOCOR [Concomitant]

REACTIONS (5)
  - HEPATIC ENZYME INCREASED [None]
  - ABDOMINAL PAIN [None]
  - PAIN IN EXTREMITY [None]
  - NAUSEA [None]
  - VOMITING [None]
